FAERS Safety Report 19476798 (Version 1)
Quarter: 2021Q2

REPORT INFORMATION
  Report Type: Spontaneous
  Country: US (occurrence: US)
  Receive Date: 20210630
  Receipt Date: 20210630
  Transmission Date: 20210717
  Serious: Yes (Other)
  Sender: FDA-Public Use
  Company Number: US-ASTRAZENECA-2021A564733

PATIENT
  Sex: Male
  Weight: 98 kg

DRUGS (2)
  1. LEVOTHYROXINE. [Concomitant]
     Active Substance: LEVOTHYROXINE
     Dosage: 100 MG, ORALLY, ONCE A DAY
  2. IMFINZI [Suspect]
     Active Substance: DURVALUMAB
     Dosage: 10ML/KG EVERY TWO WEEKS
     Route: 042

REACTIONS (3)
  - Weight increased [Not Recovered/Not Resolved]
  - Thyroid hormones decreased [Not Recovered/Not Resolved]
  - Dry mouth [Not Recovered/Not Resolved]
